FAERS Safety Report 13179540 (Version 1)
Quarter: 2017Q1

REPORT INFORMATION
  Report Type: Spontaneous
  Country: US (occurrence: US)
  Receive Date: 20170202
  Receipt Date: 20170202
  Transmission Date: 20170428
  Serious: No
  Sender: FDA-Public Use
  Company Number: US-SHIRE-US201700367

PATIENT
  Age: 43 Year
  Sex: Female
  Weight: 87.98 kg

DRUGS (1)
  1. VYVANSE [Suspect]
     Active Substance: LISDEXAMFETAMINE DIMESYLATE
     Indication: BINGE EATING
     Dosage: 70 MG, 1X/DAY:QD (IN YOGURT)
     Route: 048
     Dates: start: 20161130

REACTIONS (5)
  - Wrong technique in product usage process [Unknown]
  - Constipation [Recovered/Resolved]
  - Product quality issue [Recovered/Resolved]
  - Drug ineffective [Unknown]
  - Incorrect dose administered [Recovered/Resolved]

NARRATIVE: CASE EVENT DATE: 20161130
